FAERS Safety Report 10109009 (Version 3)
Quarter: 2014Q3

REPORT INFORMATION
  Report Type: Spontaneous
  Country: US (occurrence: US)
  Receive Date: 20140425
  Receipt Date: 20140926
  Transmission Date: 20150326
  Serious: Yes (Hospitalization, Other)
  Sender: FDA-Public Use
  Company Number: US-UCBSA-115019

PATIENT
  Age: 51 Year
  Sex: Female
  Weight: 124.73 kg

DRUGS (13)
  1. NAPROXEN. [Concomitant]
     Active Substance: NAPROXEN
     Indication: INFLAMMATION
     Dosage: 375MG BID WHEN NEEDED
     Route: 048
  2. ASA [Concomitant]
     Active Substance: ASPIRIN
  3. LISINOPRIL. [Concomitant]
     Active Substance: LISINOPRIL
     Indication: BLOOD PRESSURE
     Dosage: 40 MG, ONCE DAILY (QD)
     Route: 048
  4. PROTONIX [Concomitant]
     Active Substance: PANTOPRAZOLE SODIUM
     Indication: GASTROOESOPHAGEAL REFLUX DISEASE
     Dosage: 40 MG, ONCE DAILY (QD)
     Route: 048
     Dates: start: 2013
  5. FLEXEROL [Concomitant]
     Indication: BACK PAIN
     Dosage: 10MG ONCE IN 4 HRS WHEN NEEDED
     Route: 048
  6. ALEVE [Concomitant]
     Active Substance: NAPROXEN SODIUM
  7. METOREPROLOL [Concomitant]
     Indication: BLOOD PRESSURE
     Dosage: 100 MG, 2X/DAY (BID)
     Route: 048
     Dates: start: 201305
  8. LASIX [Concomitant]
     Active Substance: FUROSEMIDE
     Indication: BLOOD PRESSURE
     Dosage: 40 MG, ONCE DAILY (QD)
     Route: 048
  9. VIIBRYD [Concomitant]
     Active Substance: VILAZODONE HYDROCHLORIDE
     Indication: DEPRESSION
     Dosage: 40 MG, ONCE DAILY (QD)
     Route: 048
     Dates: start: 201212
  10. GABAPENTIN. [Concomitant]
     Active Substance: GABAPENTIN
     Indication: CONVULSION
     Dosage: 300 MG, ONCE DAILY (QD)
     Route: 048
     Dates: start: 201306
  11. KEPPRA [Suspect]
     Active Substance: LEVETIRACETAM
     Indication: CONVULSION
     Dosage: 500 MG, 2X/DAY (BID)
     Dates: start: 201306
  12. SINGULAIR [Concomitant]
     Active Substance: MONTELUKAST SODIUM
     Indication: HYPERSENSITIVITY
     Dosage: 10 MG, ONCE DAILY (QD)
     Route: 048
  13. ALDACTONE [Concomitant]
     Active Substance: SPIRONOLACTONE
     Indication: BLOOD PRESSURE
     Dosage: 25 MG, ONCE DAILY (QD)
     Route: 048
     Dates: start: 201305

REACTIONS (5)
  - Dizziness [Recovering/Resolving]
  - Brain stem haemorrhage [Recovered/Resolved]
  - Loss of consciousness [Recovered/Resolved]
  - Headache [Not Recovered/Not Resolved]
  - Convulsion [Recovered/Resolved]

NARRATIVE: CASE EVENT DATE: 2013
